FAERS Safety Report 9463172 (Version 1)
Quarter: 2013Q3

REPORT INFORMATION
  Report Type: Spontaneous
  Country: AU (occurrence: AU)
  Receive Date: 20130817
  Receipt Date: 20130817
  Transmission Date: 20140515
  Serious: Yes (Other)
  Sender: FDA-Public Use
  Company Number: AU-JNJFOC-20130801181

PATIENT
  Age: 3 Year
  Sex: Female

DRUGS (6)
  1. ZYRTEC 20 ML [Suspect]
     Route: 048
  2. ZYRTEC 20 ML [Suspect]
     Indication: HYPERSENSITIVITY
     Dosage: 4 DROPS THE FIRST TIME AND THE SECOND DOSE NEXT DAY WAS 5 DROPS.
     Route: 048
     Dates: start: 20130725
  3. HOMEOPATHIC MEDICATIONS [Concomitant]
     Indication: DYSPEPSIA
     Route: 065
  4. HOMEOPATHIC MEDICATIONS [Concomitant]
     Indication: GASTROOESOPHAGEAL REFLUX DISEASE
     Route: 065
  5. SLIPPERY ELM [Concomitant]
     Indication: DYSPEPSIA
     Route: 065
  6. SLIPPERY ELM [Concomitant]
     Indication: GASTROOESOPHAGEAL REFLUX DISEASE
     Route: 065

REACTIONS (4)
  - Conjunctivitis allergic [Recovering/Resolving]
  - Hypersomnia [Recovering/Resolving]
  - Rash [Recovering/Resolving]
  - Fatigue [Recovering/Resolving]
